FAERS Safety Report 17981386 (Version 2)
Quarter: 2020Q3

REPORT INFORMATION
  Report Type: Spontaneous
  Country: US (occurrence: US)
  Receive Date: 20200705
  Receipt Date: 20200713
  Transmission Date: 20201103
  Serious: Yes (Hospitalization, Other)
  Sender: FDA-Public Use
  Company Number: US-BEH-2020119362

PATIENT
  Age: 42 Year
  Sex: Female
  Weight: 90.7 kg

DRUGS (2)
  1. HIZENTRA [Suspect]
     Active Substance: HUMAN IMMUNOGLOBULIN G
     Indication: AUTONOMIC NEUROPATHY
     Dosage: 18 GRAM, QW
     Route: 058
     Dates: start: 202002, end: 2020
  2. HIZENTRA [Suspect]
     Active Substance: HUMAN IMMUNOGLOBULIN G
     Dosage: 18 UNK
     Route: 058
     Dates: start: 202005, end: 2020

REACTIONS (3)
  - Complication associated with device [Unknown]
  - Deep vein thrombosis [Unknown]
  - Cardiac operation [Unknown]

NARRATIVE: CASE EVENT DATE: 20200409
